FAERS Safety Report 5500971-6 (Version None)
Quarter: 2007Q4

REPORT INFORMATION
  Report Type: 
  Country: None (occurrence: None)
  Receive Date: 20071029
  Receipt Date: 20071016
  Transmission Date: 20080405
  Serious: Yes (Hospitalization)
  Sender: FDA-Public Use
  Company Number: PHHO2007JP15954

PATIENT
  Age: 75 Year
  Sex: Male

DRUGS (9)
  1. DIOVAN [Suspect]
     Indication: HYPERTENSION
     Dosage: 80 MG, QD
     Dates: start: 20031217, end: 20060614
  2. DILTIAZEM HCL [Concomitant]
     Indication: HYPERTENSION
  3. DIART [Concomitant]
     Indication: HYPERTENSION
  4. LANIRAPID [Concomitant]
     Indication: ARRHYTHMIA
  5. GLYBURIDE [Concomitant]
     Indication: DIABETES MELLITUS
  6. BUFORMIN HYDROCHLORIDE [Concomitant]
     Indication: DIABETES MELLITUS
  7. ATELEC [Concomitant]
     Indication: HYPERTENSION
  8. ACTOS [Concomitant]
     Indication: DIABETES MELLITUS
  9. WARFARIN SODIUM [Concomitant]
     Indication: ARRHYTHMIA

REACTIONS (3)
  - EXTRADURAL HAEMATOMA [None]
  - MEMORY IMPAIRMENT [None]
  - NERVOUS SYSTEM DISORDER [None]
